FAERS Safety Report 9257574 (Version 1)
Quarter: 2013Q2

REPORT INFORMATION
  Report Type: Spontaneous
  Country: JP (occurrence: JP)
  Receive Date: 20130426
  Receipt Date: 20130426
  Transmission Date: 20140414
  Serious: Yes (Other)
  Sender: FDA-Public Use
  Company Number: JP-JNJFOC-20130411941

PATIENT
  Sex: Male

DRUGS (2)
  1. TRAMCET [Suspect]
     Indication: PAIN IN EXTREMITY
     Dosage: 1 OR 2 TABLETS PER DAY
     Route: 048
  2. LOXONIN [Concomitant]
     Indication: PAIN
     Dosage: AS NECESSARY
     Route: 048

REACTIONS (3)
  - Renal cancer [Unknown]
  - Treatment noncompliance [Unknown]
  - Inadequate analgesia [Unknown]
